FAERS Safety Report 4825499-8 (Version None)
Quarter: 2005Q4

REPORT INFORMATION
  Report Type: 
  Country: None (occurrence: None)
  Receive Date: 20051111
  Receipt Date: 20050826
  Transmission Date: 20060501
  Serious: No
  Sender: FDA-Public Use
  Company Number: US-GLAXOSMITHKLINE-A0574421A

PATIENT
  Age: 53 Year
  Sex: Male

DRUGS (12)
  1. TRIZIVIR [Suspect]
     Indication: HIV INFECTION
     Route: 048
     Dates: start: 20050421, end: 20050516
  2. ABACAVIR SULFATE [Suspect]
     Indication: HIV INFECTION
     Route: 048
     Dates: start: 20011201, end: 20041101
  3. SUSTIVA [Suspect]
     Indication: HIV INFECTION
     Route: 048
     Dates: start: 20050421
  4. METOPROLOL [Concomitant]
     Dosage: 100MG TWICE PER DAY
     Route: 048
     Dates: start: 20050421
  5. ATORVASTATIN CALCIUM [Concomitant]
     Dosage: 40MG PER DAY
     Route: 048
     Dates: start: 20050421
  6. SEROQUEL [Concomitant]
     Dosage: 175MG PER DAY
     Route: 048
     Dates: start: 20050421
  7. FUROSEMIDE [Concomitant]
     Dosage: 20MG THREE TIMES PER DAY
     Route: 048
     Dates: start: 20050421
  8. SENNA [Concomitant]
     Route: 048
  9. DOCUSATE [Concomitant]
     Dosage: 20MG TWICE PER DAY
     Route: 048
     Dates: start: 20050421
  10. FESO4 [Concomitant]
     Dosage: 325MG TWICE PER DAY
     Route: 048
     Dates: start: 20050421
  11. FOLATE [Concomitant]
     Dosage: 1MG PER DAY
     Route: 048
     Dates: start: 20050421
  12. THIAMINE [Concomitant]
     Dosage: 100MG PER DAY
     Route: 048
     Dates: start: 20050421

REACTIONS (7)
  - CHILLS [None]
  - DIARRHOEA [None]
  - DYSPHAGIA [None]
  - FATIGUE [None]
  - HYPERSENSITIVITY [None]
  - NAUSEA [None]
  - VOMITING [None]
